FAERS Safety Report 8459090-1 (Version None)
Quarter: 2012Q2

REPORT INFORMATION
  Report Type: 
  Country: None (occurrence: None)
  Receive Date: 20120622
  Receipt Date: 20120612
  Transmission Date: 20120825
  Serious: Yes (Hospitalization)
  Sender: FDA-Public Use
  Company Number: DE-PFIZER INC-2012140921

PATIENT
  Age: 64 Year
  Sex: Female
  Weight: 61 kg

DRUGS (1)
  1. AROMASIN [Suspect]
     Indication: BREAST CANCER
     Dosage: 25 MG, DAILY DOSE
     Dates: start: 20100617

REACTIONS (2)
  - CEREBRAL INFARCTION [None]
  - CAROTID ARTERY OCCLUSION [None]
